FAERS Safety Report 10052648 (Version 1)
Quarter: 2014Q2

REPORT INFORMATION
  Report Type: Spontaneous
  Country: US (occurrence: US)
  Receive Date: 20140402
  Receipt Date: 20140402
  Transmission Date: 20141212
  Serious: Yes (Hospitalization, Other)
  Sender: FDA-Public Use
  Company Number: US-BAYER-2014-049106

PATIENT
  Age: 36 Year
  Sex: Female
  Weight: 76.19 kg

DRUGS (17)
  1. YAZ [Suspect]
  2. MOTRIN [Concomitant]
     Dosage: 800 MG, TID
     Route: 048
  3. LIDOCAINE W/EPINEPHRIN [Concomitant]
     Indication: MOLE EXCISION
     Dosage: .3 CC
  4. GUAIFENESIN [Concomitant]
     Dosage: 600 MG, UNK 12 H (INTERPRETED AS HOURS)
     Route: 048
  5. OXYMETAZOLINE HYDROCHLORIDE [Concomitant]
     Dosage: 1-2 SPRAYS
     Route: 045
  6. PSEUDOEPHEDRINEHCL W/CHLORPHENI./DEXTROMETH. [Concomitant]
     Indication: NASAL CONGESTION
     Dosage: 60 MG, PRN
     Route: 048
  7. CONCERTA [Concomitant]
     Dosage: 72 MG, QD
     Route: 048
  8. LEXAPRO [Concomitant]
     Dosage: 20 MG, QD
     Route: 048
  9. NEXIUM [Concomitant]
     Dosage: 40 MG, QD
     Route: 048
  10. SYNTHROID [Concomitant]
     Dosage: 100 MCG DAILY
     Route: 048
  11. ATIVAN [Concomitant]
     Indication: TEMPOROMANDIBULAR JOINT SYNDROME
     Dosage: 1 MG 2 TABS AT BEDTIME
     Route: 048
  12. FLUTICASONE PROPIONATE [Concomitant]
     Dosage: 0.05 %, UNK
     Route: 045
  13. LORATADINE [Concomitant]
     Dosage: 10 MG, QD
  14. DULOXETINE HYDROCHLORIDE [Concomitant]
     Dosage: 30 MG, BID
     Route: 048
  15. BENZOYL PEROXIDE [Concomitant]
     Dosage: 5 %, PRN
     Route: 061
  16. PROMETHAZINE HYDROCHLORIDE [Concomitant]
     Indication: NAUSEA
     Dosage: 25 MG, PRN
     Route: 048
  17. AMITIZA [Concomitant]
     Indication: CONSTIPATION
     Dosage: 24 MCG BID PRN
     Route: 048

REACTIONS (2)
  - Pulmonary embolism [None]
  - Cholelithiasis [None]
